FAERS Safety Report 9383674 (Version 3)
Quarter: 2013Q3

REPORT INFORMATION
  Report Type: Spontaneous
  Country: FR (occurrence: FR)
  Receive Date: 20130704
  Receipt Date: 20130816
  Transmission Date: 20140515
  Serious: Yes (Death)
  Sender: FDA-Public Use
  Company Number: FR-AMGEN-FRASP2013046501

PATIENT
  Age: 67 Year
  Sex: Female
  Weight: 55 kg

DRUGS (4)
  1. NEULASTA [Suspect]
     Indication: PROPHYLAXIS
     Dosage: 6 MG, UNK
     Route: 058
     Dates: start: 20121104, end: 20121104
  2. CISPLATINE [Concomitant]
     Indication: SMALL CELL LUNG CANCER METASTATIC
     Dosage: 75 MG/M2, UNK
     Route: 042
     Dates: start: 20121031, end: 20121103
  3. VP 16-213 [Concomitant]
     Indication: SMALL CELL LUNG CANCER METASTATIC
     Dosage: 100 MG/M2, UNK
     Route: 042
     Dates: start: 20121031, end: 20121102
  4. SOLUPRED                           /00016201/ [Concomitant]
     Indication: LUNG NEOPLASM MALIGNANT
     Dosage: 100 MG/D
     Route: 048
     Dates: start: 201207, end: 201304

REACTIONS (3)
  - Death [Fatal]
  - Pain [Recovered/Resolved]
  - Bone pain [Recovered/Resolved]
